FAERS Safety Report 9433798 (Version 1)
Quarter: 2013Q3

REPORT INFORMATION
  Report Type: Spontaneous
  Country: DK (occurrence: DK)
  Receive Date: 20130731
  Receipt Date: 20130731
  Transmission Date: 20140515
  Serious: Yes (Hospitalization, Other)
  Sender: FDA-Public Use
  Company Number: PHHY2012DK087987

PATIENT
  Sex: Female
  Weight: 67 kg

DRUGS (17)
  1. SANDIMMUN NEORAL [Suspect]
     Indication: CYSTITIS INTERSTITIAL
     Dosage: 100 MG, BID
     Route: 048
     Dates: start: 20030625
  2. SANDIMMUN NEORAL [Suspect]
     Dosage: 50 MG, UNK
     Route: 048
     Dates: end: 20121012
  3. SIMVASTATIN ^ORION^ [Concomitant]
     Indication: BLOOD CHOLESTEROL INCREASED
     Dosage: 40 MG, QHS
     Route: 048
  4. ELTROXIN [Concomitant]
     Indication: METABOLIC DISORDER
     Dosage: 100 UG, QD
     Route: 048
  5. ELTROXIN [Concomitant]
     Dosage: 50 UG, QD
     Dates: start: 20090729
  6. BETOLVEX [Concomitant]
     Indication: VITAMIN B12 DEFICIENCY
     Dosage: 1 MG
     Route: 048
     Dates: start: 20050111
  7. MOVICOL [Concomitant]
     Route: 048
     Dates: start: 20051117
  8. PROTELOS (STRONTIUM RANELATE) [Concomitant]
     Indication: OSTEOPOROSIS
     Dosage: 1 DF DAILY
     Route: 048
     Dates: start: 20100720
  9. CENTYL MITE W/POTASSIUM CHLORIDE [Concomitant]
     Indication: BLOOD PRESSURE
     Dosage: 1 DF, QD
     Route: 048
     Dates: start: 20101207
  10. FURIX [Concomitant]
     Indication: DIURETIC THERAPY
     Dosage: 40 MG, BID
     Route: 048
     Dates: start: 20110308
  11. METOPROLOL SUCCINATE [Concomitant]
     Indication: BLOOD PRESSURE
     Dosage: 100 MG, QD
     Route: 048
     Dates: start: 20110606
  12. LOSARTAN [Concomitant]
     Indication: BLOOD PRESSURE
     Dosage: 50 MG, QD
     Route: 048
     Dates: start: 20111028
  13. STILNOCT [Concomitant]
     Indication: SLEEP DISORDER
     Dosage: 5 MG, UNK
     Route: 048
     Dates: start: 20111205
  14. FLIXONASE [Concomitant]
     Indication: NASAL DISCOMFORT
     Dosage: 1 DF
     Route: 048
     Dates: start: 20120110
  15. SIFROL [Concomitant]
     Indication: RESTLESS LEGS SYNDROME
     Dosage: 0.18 MG, QD
     Route: 048
     Dates: start: 20120113
  16. VAGIFEM [Concomitant]
     Dosage: 25 UG, BIW
     Route: 067
     Dates: start: 20120208
  17. ZANIDIP [Concomitant]
     Indication: BLOOD PRESSURE
     Dosage: 1 DF, BID
     Route: 048
     Dates: start: 20120221

REACTIONS (5)
  - Renal impairment [Recovered/Resolved with Sequelae]
  - Malaise [Unknown]
  - Fatigue [Unknown]
  - Hypertension [Recovering/Resolving]
  - Withdrawal syndrome [Unknown]
